FAERS Safety Report 9748050 (Version 2)
Quarter: 2013Q4

REPORT INFORMATION
  Report Type: Spontaneous
  Country: US (occurrence: US)
  Receive Date: 20131212
  Receipt Date: 20131212
  Transmission Date: 20140711
  Serious: No
  Sender: FDA-Public Use
  Company Number: US-TEVA-387755USA

PATIENT
  Age: 39 Year
  Sex: Female
  Weight: 86.26 kg

DRUGS (7)
  1. PARAGARD 380A [Suspect]
     Indication: CONTRACEPTION
     Dates: start: 20130123
  2. HYDROCHLOROTHIAZIDE [Concomitant]
     Indication: HYPERTENSION
     Dosage: 25 MILLIGRAM DAILY;
  3. ACYCLOVIR [Concomitant]
     Dosage: 400 MILLIGRAM DAILY;
  4. AMLODIPINE [Concomitant]
     Indication: HYPERTENSION
     Dosage: 10 MILLIGRAM DAILY;
  5. LIPITOR [Concomitant]
     Indication: BLOOD CHOLESTEROL INCREASED
     Dosage: 10 MILLIGRAM DAILY;
  6. PROTONIX [Concomitant]
     Indication: GASTROOESOPHAGEAL REFLUX DISEASE
     Dosage: 40 MILLIGRAM DAILY;
  7. ZOLPIDEM [Concomitant]
     Dosage: 10 MILLIGRAM DAILY;

REACTIONS (3)
  - Device expulsion [Not Recovered/Not Resolved]
  - Abdominal pain lower [Recovered/Resolved]
  - Back pain [Unknown]
